FAERS Safety Report 23051660 (Version 1)
Quarter: 2023Q4

REPORT INFORMATION
  Report Type: Spontaneous
  Country: US (occurrence: US)
  Receive Date: 20231010
  Receipt Date: 20231010
  Transmission Date: 20240109
  Serious: No
  Sender: FDA-Public Use
  Company Number: US-Sprout Pharmaceuticals, Inc.-2023SP000006

PATIENT
  Age: 35 Year
  Sex: Female

DRUGS (4)
  1. ADDYI [Suspect]
     Active Substance: FLIBANSERIN
     Indication: Product used for unknown indication
     Dosage: RX # 7721173
     Route: 048
     Dates: start: 20221203
  2. ADDYI [Suspect]
     Active Substance: FLIBANSERIN
     Dosage: RX # 7721173
     Route: 048
     Dates: start: 20230102
  3. VITAMIN D [Concomitant]
     Active Substance: VITAMIN D NOS
     Indication: Product used for unknown indication
  4. Iron medicine [Concomitant]
     Indication: Product used for unknown indication

REACTIONS (2)
  - Intentional dose omission [Unknown]
  - Somnolence [Unknown]

NARRATIVE: CASE EVENT DATE: 20221201
